FAERS Safety Report 6937805-9 (Version None)
Quarter: 2010Q3

REPORT INFORMATION
  Report Type: 
  Country: None (occurrence: None)
  Receive Date: 20100823
  Receipt Date: 20100823
  Transmission Date: 20110219
  Serious: Yes (Hospitalization)
  Sender: FDA-Public Use
  Company Number: None

PATIENT
  Age: 58 Year
  Sex: Male
  Weight: 83 kg

DRUGS (1)
  1. FLUCONAZOLE [Suspect]
     Indication: CANDIDIASIS
     Dosage: 100 MG EVERY DAY PO
     Route: 048
     Dates: start: 20100401, end: 20100419

REACTIONS (3)
  - ODYNOPHAGIA [None]
  - PENILE HAEMORRHAGE [None]
  - STEVENS-JOHNSON SYNDROME [None]
